FAERS Safety Report 21727984 (Version 1)
Quarter: 2022Q4

REPORT INFORMATION
  Report Type: Spontaneous
  Country: US (occurrence: None)
  Receive Date: 20221213
  Receipt Date: 20221213
  Transmission Date: 20230113
  Serious: No
  Sender: FDA-Public Use
  Company Number: None

PATIENT
  Age: 60 Year
  Sex: Male
  Weight: 109.77 kg

DRUGS (1)
  1. VEKLURY [Suspect]
     Active Substance: REMDESIVIR
     Indication: Product used for unknown indication
     Dosage: OTHER QUANTITY : 3 VIALS/100 MG;?FREQUENCY : DAILY;?OTHER ROUTE : 3 UNITS 100 MG PER VIAL;?
     Route: 050
     Dates: start: 20211118, end: 20211119

REACTIONS (4)
  - Prostate cancer [None]
  - Bradycardia [None]
  - Cardiac pacemaker insertion [None]
  - Toxicity to various agents [None]
